FAERS Safety Report 5957022-9 (Version None)
Quarter: 2008Q4

REPORT INFORMATION
  Report Type: 
  Country: None (occurrence: None)
  Receive Date: 20081118
  Receipt Date: 20081017
  Transmission Date: 20090506
  Serious: No
  Sender: FDA-Public Use
  Company Number: A0746788A

PATIENT
  Age: 83 Year
  Sex: Male

DRUGS (7)
  1. COREG CR [Suspect]
     Dosage: 10MG PER DAY
     Route: 048
     Dates: start: 20080701, end: 20080908
  2. ATACAND [Concomitant]
  3. FLOMAX [Concomitant]
  4. AVODART [Concomitant]
  5. ASPIRIN [Concomitant]
  6. UNITHROID [Concomitant]
  7. SIMVASTATIN [Concomitant]

REACTIONS (1)
  - PERIPHERAL COLDNESS [None]
